FAERS Safety Report 20132590 (Version 1)
Quarter: 2021Q4

REPORT INFORMATION
  Report Type: Spontaneous
  Country: US (occurrence: US)
  Receive Date: 20211130
  Receipt Date: 20211130
  Transmission Date: 20220303
  Serious: No
  Sender: FDA-Public Use
  Company Number: US-009507513-2111USA008299

PATIENT
  Sex: Female

DRUGS (1)
  1. KEYTRUDA [Suspect]
     Active Substance: PEMBROLIZUMAB
     Dosage: UNK
     Dates: start: 202104

REACTIONS (4)
  - Somnolence [Unknown]
  - Pain [Unknown]
  - Asthenia [Unknown]
  - Balance disorder [Unknown]

NARRATIVE: CASE EVENT DATE: 20210401
